FAERS Safety Report 5609252-3 (Version None)
Quarter: 2008Q1

REPORT INFORMATION
  Report Type: 
  Country: None (occurrence: None)
  Receive Date: 20080129
  Receipt Date: 20080129
  Transmission Date: 20080703
  Serious: Yes (Other)
  Sender: FDA-Public Use
  Company Number: None

PATIENT
  Age: 33 Year
  Sex: Female
  Weight: 45.3597 kg

DRUGS (3)
  1. KENALOG [Suspect]
     Indication: HYPERSENSITIVITY
     Dosage: 1 DOSE  UNK
     Dates: start: 20070814, end: 20070814
  2. KENALOG [Suspect]
     Indication: PRURITUS
     Dosage: 1 DOSE  UNK
     Dates: start: 20070814, end: 20070814
  3. KENALOG [Suspect]
     Indication: URTICARIA
     Dosage: 1 DOSE  UNK
     Dates: start: 20070814, end: 20070814

REACTIONS (2)
  - DEFORMITY [None]
  - INJECTION SITE REACTION [None]
